FAERS Safety Report 22132979 (Version 1)
Quarter: 2023Q1

REPORT INFORMATION
  Report Type: Report from Study
  Country: US (occurrence: US)
  Receive Date: 20230323
  Receipt Date: 20230323
  Transmission Date: 20230417
  Serious: Yes (Hospitalization)
  Sender: FDA-Public Use
  Company Number: US-ACADIA PHARMACEUTICALS INC.-ACA-2023-PIM-001052

PATIENT
  Age: 80 Year
  Sex: Male

DRUGS (14)
  1. NUPLAZID [Suspect]
     Active Substance: PIMAVANSERIN TARTRATE
     Dosage: 34 MILLIGRAM, QD
     Route: 048
     Dates: start: 20230123, end: 20230221
  2. MELATONIN [Concomitant]
     Active Substance: MELATONIN
     Dosage: 3MG
  3. LORAZEPAM [Concomitant]
     Active Substance: LORAZEPAM
     Dosage: 1MG
  4. OMEPRAZOLE [Concomitant]
     Active Substance: OMEPRAZOLE
     Dosage: 20MG
  5. QUETIAPINE [Concomitant]
     Active Substance: QUETIAPINE
     Dosage: 25MG
  6. MIDODRINE [Concomitant]
     Active Substance: MIDODRINE
     Dosage: 5MG
  7. SERTRALINE [Concomitant]
     Active Substance: SERTRALINE HYDROCHLORIDE
     Dosage: 100 MG
  8. AMANTADINE [Concomitant]
     Active Substance: AMANTADINE
     Dosage: 100 MG
  9. ASPIRIN [Concomitant]
     Active Substance: ASPIRIN
     Dosage: 81 MG
  10. CARBIDOPA\LEVODOPA [Concomitant]
     Active Substance: CARBIDOPA\LEVODOPA
     Dosage: 25-100 MG
  11. ROSUVASTATIN [Concomitant]
     Active Substance: ROSUVASTATIN
     Dosage: 5 MG
  12. SILODOSIN [Concomitant]
     Active Substance: SILODOSIN
     Dosage: 8 MG
  13. CYANOCOBALAMIN [Concomitant]
     Active Substance: CYANOCOBALAMIN
     Dosage: 500 MCG
  14. VITAMIN D3 [Concomitant]
     Active Substance: CHOLECALCIFEROL
     Dosage: 1000 IU

REACTIONS (4)
  - Freezing phenomenon [Recovered/Resolved]
  - Dysstasia [Recovered/Resolved]
  - Confusional state [Recovered/Resolved]
  - Peripheral swelling [Recovered/Resolved]

NARRATIVE: CASE EVENT DATE: 20230223
